FAERS Safety Report 13329529 (Version 1)
Quarter: 2017Q1

REPORT INFORMATION
  Report Type: Spontaneous
  Country: US (occurrence: US)
  Receive Date: 20170313
  Receipt Date: 20170313
  Transmission Date: 20170428
  Serious: No
  Sender: FDA-Public Use
  Company Number: US-GLAXOSMITHKLINE-US2017GSK033886

PATIENT
  Sex: Female

DRUGS (2)
  1. INCRUSE ELLIPTA [Suspect]
     Active Substance: UMECLIDINIUM BROMIDE
     Dosage: 1 PUFF(S), QD
  2. INCRUSE ELLIPTA [Suspect]
     Active Substance: UMECLIDINIUM BROMIDE
     Indication: DYSPNOEA
     Dosage: 1 PUFF(S), BID
     Dates: start: 20161129

REACTIONS (1)
  - Prescribed overdose [Recovered/Resolved]
